FAERS Safety Report 12225408 (Version 1)
Quarter: 2016Q1

REPORT INFORMATION
  Report Type: Spontaneous
  Country: US (occurrence: None)
  Receive Date: 20160330
  Receipt Date: 20160330
  Transmission Date: 20160526
  Serious: Yes (Disabling)
  Sender: FDA-Public Use
  Company Number: None

PATIENT
  Age: 54 Year
  Sex: Female
  Weight: 72.58 kg

DRUGS (8)
  1. FISH OIL [Concomitant]
     Active Substance: FISH OIL
  2. CRANBERRY. [Concomitant]
     Active Substance: CRANBERRY
  3. SYNTHROID [Concomitant]
     Active Substance: LEVOTHYROXINE SODIUM
  4. VITAMIN D3 [Concomitant]
     Active Substance: CHOLECALCIFEROL
  5. DECADRON [Concomitant]
     Active Substance: DEXAMETHASONE
  6. ENBREL [Suspect]
     Active Substance: ETANERCEPT
     Indication: RHEUMATOID ARTHRITIS
     Dosage: 50MG SINGLE USE PRE-FILLED SYRINGE ONCE WEEKLY INJECTION STOMACH X 3
     Dates: start: 20160202, end: 20160217
  7. TRAMADOL. [Concomitant]
     Active Substance: TRAMADOL
  8. TURMERIC + CURAMIN COMPLEX [Concomitant]

REACTIONS (6)
  - Episcleritis [None]
  - Headache [None]
  - Sinusitis [None]
  - Fungal infection [None]
  - Urinary tract infection [None]
  - Muscle spasms [None]

NARRATIVE: CASE EVENT DATE: 20160219
